FAERS Safety Report 13926131 (Version 2)
Quarter: 2017Q3

REPORT INFORMATION
  Report Type: Spontaneous
  Country: BR (occurrence: BR)
  Receive Date: 20170831
  Receipt Date: 20170908
  Transmission Date: 20171127
  Serious: No
  Sender: FDA-Public Use
  Company Number: BR-PFIZER INC-2017369138

PATIENT
  Age: 73 Year
  Sex: Male

DRUGS (3)
  1. HYLO GEL [Concomitant]
     Dosage: UNK
     Dates: start: 201708
  2. LOSARTAN. [Concomitant]
     Active Substance: LOSARTAN
     Dosage: UNK
  3. XALATAN [Suspect]
     Active Substance: LATANOPROST
     Indication: GLAUCOMA
     Dosage: 3 UG, 2X/DAY, 1 DROP IN EACH EYE TWICE PER DAY
     Dates: start: 201708

REACTIONS (1)
  - Product use issue [Unknown]
